FAERS Safety Report 13284462 (Version 1)
Quarter: 2017Q1

REPORT INFORMATION
  Report Type: Spontaneous
  Country: US (occurrence: US)
  Receive Date: 20170301
  Receipt Date: 20170301
  Transmission Date: 20170428
  Serious: Yes (Other)
  Sender: FDA-Public Use
  Company Number: US-JNJFOC-20170225471

PATIENT
  Age: 59 Year
  Sex: Female
  Weight: 52.62 kg

DRUGS (3)
  1. TRAZODONE [Concomitant]
     Active Substance: TRAZODONE HYDROCHLORIDE
     Indication: SEDATION
     Dosage: 25 MG TO 50 MG
     Route: 065
     Dates: start: 201701
  2. INVEGA SUSTENNA [Suspect]
     Active Substance: PALIPERIDONE PALMITATE
     Indication: BIPOLAR DISORDER
     Route: 030
     Dates: start: 20170104
  3. GLIPIZIDE. [Concomitant]
     Active Substance: GLIPIZIDE
     Indication: DIABETES MELLITUS
     Route: 065
     Dates: start: 201702

REACTIONS (5)
  - Weight increased [Not Recovered/Not Resolved]
  - Breast cancer stage III [Not Recovered/Not Resolved]
  - Parkinsonism [Unknown]
  - Product use issue [Unknown]
  - Off label use [Unknown]

NARRATIVE: CASE EVENT DATE: 2017
